FAERS Safety Report 14025401 (Version 1)
Quarter: 2017Q3

REPORT INFORMATION
  Report Type: Spontaneous
  Country: US (occurrence: US)
  Receive Date: 20170929
  Receipt Date: 20170929
  Transmission Date: 20171128
  Serious: Yes (Other)
  Sender: FDA-Public Use
  Company Number: US-PFIZER INC-2017415867

PATIENT
  Age: 34 Year
  Sex: Female

DRUGS (6)
  1. KETAMINE HCL [Suspect]
     Active Substance: KETAMINE HYDROCHLORIDE
     Indication: PAIN
     Dosage: 450 MG, UNK (3 PUMPS OF A TOPICAL PAIN CREAM)
     Route: 048
  2. CYCLOBENZAPRINE. [Suspect]
     Active Substance: CYCLOBENZAPRINE
     Indication: PAIN
     Dosage: 90 MG, UNK (3 PUMPS OF A TOPICAL PAIN CREAM)
     Route: 048
  3. FLURBIPROFEN. [Suspect]
     Active Substance: FLURBIPROFEN
     Indication: PAIN
     Dosage: 450 MG, UNK (3 PUMPS OF A TOPICAL PAIN CREAM)
     Route: 048
  4. CLONIDINE. [Suspect]
     Active Substance: CLONIDINE
     Indication: PAIN
     Dosage: 0.9 MG, UNK (3 PUMPS OF A TOPICAL PAIN CREAM)
     Route: 048
  5. BUPIVACAINE HCL [Suspect]
     Active Substance: BUPIVACAINE HYDROCHLORIDE
     Indication: PAIN
     Dosage: 90 MG, UNK (3 PUMPS OF A TOPICAL PAIN CREAM)
     Route: 048
  6. METHADONE [Concomitant]
     Active Substance: METHADONE HYDROCHLORIDE
     Dosage: UNK

REACTIONS (3)
  - Intentional product misuse [Unknown]
  - Toxicity to various agents [Unknown]
  - Prescription drug used without a prescription [Unknown]
